FAERS Safety Report 16216004 (Version 1)
Quarter: 2019Q2

REPORT INFORMATION
  Report Type: Spontaneous
  Country: US (occurrence: US)
  Receive Date: 20190419
  Receipt Date: 20190419
  Transmission Date: 20190711
  Serious: No
  Sender: FDA-Public Use
  Company Number: US-ELI_LILLY_AND_COMPANY-US201904006195

PATIENT
  Sex: Female

DRUGS (8)
  1. PERCOCET [Interacting]
     Active Substance: ACETAMINOPHEN\OXYCODONE HYDROCHLORIDE
     Indication: INTERVERTEBRAL DISC PROTRUSION
     Dosage: UNK, UNKNOWN
     Route: 065
  2. TYLENOL [Interacting]
     Active Substance: ACETAMINOPHEN
     Indication: INTERVERTEBRAL DISC PROTRUSION
     Dosage: UNK, UNKNOWN
     Route: 065
  3. CYMBALTA [Suspect]
     Active Substance: DULOXETINE HYDROCHLORIDE
     Indication: DEPRESSION
     Dosage: 120 MG, EACH MORNING
     Route: 048
     Dates: start: 2017
  4. ALEVE [Interacting]
     Active Substance: NAPROXEN SODIUM
     Indication: INTERVERTEBRAL DISC PROTRUSION
     Dosage: UNK, UNKNOWN
     Route: 065
  5. DULOXETINE HYDROCHLORIDE. [Interacting]
     Active Substance: DULOXETINE HYDROCHLORIDE
     Indication: DEPRESSION
     Dosage: UNK, UNKNOWN
     Route: 065
  6. MORPHINE [Interacting]
     Active Substance: MORPHINE
     Indication: INTERVERTEBRAL DISC PROTRUSION
     Dosage: UNK, UNKNOWN
     Route: 065
  7. TORADOL [Interacting]
     Active Substance: KETOROLAC TROMETHAMINE
     Indication: INTERVERTEBRAL DISC PROTRUSION
     Dosage: UNK, UNKNOWN
     Route: 065
  8. DILAUDID [Interacting]
     Active Substance: HYDROMORPHONE HYDROCHLORIDE
     Indication: INTERVERTEBRAL DISC PROTRUSION
     Dosage: UNK, UNKNOWN
     Route: 065
     Dates: start: 201903

REACTIONS (2)
  - Intervertebral disc protrusion [Not Recovered/Not Resolved]
  - Drug interaction [Unknown]
